FAERS Safety Report 9095422 (Version 4)
Quarter: 2013Q3

REPORT INFORMATION
  Report Type: Spontaneous
  Country: US (occurrence: US)
  Receive Date: 20130201
  Receipt Date: 20130813
  Transmission Date: 20140515
  Serious: Yes (Death, Hospitalization, Other)
  Sender: FDA-Public Use
  Company Number: US-PFIZER INC-2013038639

PATIENT
  Age: 59 Year
  Sex: Female
  Weight: 55 kg

DRUGS (3)
  1. DILANTIN [Suspect]
     Indication: CONVULSION
     Dosage: 100 MG, 3X/DAY
     Route: 048
     Dates: start: 20111111, end: 20111119
  2. DILANTIN [Suspect]
     Dosage: 100 MG, 2X/DAY
     Route: 048
     Dates: start: 20111120, end: 20111210
  3. DILANTIN [Suspect]
     Dosage: UNK
     Dates: start: 20111214, end: 201112

REACTIONS (4)
  - Stevens-Johnson syndrome [Fatal]
  - Toxic epidermal necrolysis [Fatal]
  - Drug reaction with eosinophilia and systemic symptoms [Fatal]
  - Acute generalised exanthematous pustulosis [Fatal]
